FAERS Safety Report 4971752-7 (Version None)
Quarter: 2006Q2

REPORT INFORMATION
  Report Type: 
  Country: None (occurrence: None)
  Receive Date: 20060413
  Receipt Date: 20060407
  Transmission Date: 20061013
  Serious: Yes (Hospitalization)
  Sender: FDA-Public Use
  Company Number: FR-AVENTIS-200611325FR

PATIENT
  Age: 76 Year
  Sex: Male
  Weight: 90 kg

DRUGS (4)
  1. LOVENOX [Suspect]
     Indication: THROMBOSIS PROPHYLAXIS
     Route: 058
     Dates: start: 20060126, end: 20060101
  2. LOVENOX [Suspect]
     Route: 058
     Dates: start: 20060101, end: 20060128
  3. LOVENOX [Suspect]
     Indication: KNEE ARTHROPLASTY
     Route: 058
     Dates: start: 20060126, end: 20060101
  4. LOVENOX [Suspect]
     Route: 058
     Dates: start: 20060101, end: 20060128

REACTIONS (1)
  - EXTRADURAL HAEMATOMA [None]
